FAERS Safety Report 18375548 (Version 1)
Quarter: 2020Q4

REPORT INFORMATION
  Report Type: Spontaneous
  Country: US (occurrence: US)
  Receive Date: 20201012
  Receipt Date: 20201012
  Transmission Date: 20210114
  Serious: Yes (Death)
  Sender: FDA-Public Use
  Company Number: None

PATIENT
  Age: 77 Year
  Sex: Male
  Weight: 92.99 kg

DRUGS (2)
  1. N/A [Concomitant]
     Active Substance: UNSPECIFIED INGREDIENT
  2. REMDESIVIR. [Suspect]
     Active Substance: REMDESIVIR

REACTIONS (4)
  - General physical health deterioration [None]
  - Aspergillus test positive [None]
  - Refusal of treatment by relative [None]
  - Acute kidney injury [None]

NARRATIVE: CASE EVENT DATE: 20201011
